FAERS Safety Report 5405860-3 (Version None)
Quarter: 2007Q3

REPORT INFORMATION
  Report Type: 
  Country: None (occurrence: None)
  Receive Date: 20070806
  Receipt Date: 20070706
  Transmission Date: 20080115
  Serious: Yes (Other)
  Sender: FDA-Public Use
  Company Number: PHNU2007DE02282

PATIENT
  Age: 71 Year
  Sex: Male
  Weight: 103 kg

DRUGS (10)
  1. DIOVAN [Suspect]
     Indication: HYPERTENSION
     Dosage: 160 MG/DAY
     Route: 048
     Dates: start: 20061016, end: 20070402
  2. AMLODIPINE [Concomitant]
     Indication: HYPERTENSION
     Dosage: 5 MG/DAY
     Route: 048
     Dates: start: 20061016
  3. CARVEDILOL [Suspect]
     Indication: HYPERTENSION
     Dosage: 1-0-1 DF/DAY
     Route: 048
     Dates: end: 20061015
  4. CARVEDILOL [Suspect]
     Dosage: 25 MG/DAY
     Route: 048
     Dates: start: 20061016
  5. CARVEDILOL [Suspect]
     Dosage: 3.125 MG/DAY
     Route: 048
     Dates: start: 20070401
  6. MOXONIDINE [Suspect]
     Indication: HYPERTENSION
     Dosage: 0.3 MG/DAY
     Route: 048
     Dates: end: 20070401
  7. DIOVAN HCT [Suspect]
     Indication: HYPERTENSION
     Dosage: 160/12.5 MG/DAY
     Route: 048
     Dates: start: 20061021, end: 20070401
  8. TORSEMIDE [Concomitant]
     Indication: HYPERTENSION
  9. ASPIRIN [Concomitant]
  10. PLAVIX [Concomitant]

REACTIONS (4)
  - BLOOD CREATININE INCREASED [None]
  - BLOOD PRESSURE FLUCTUATION [None]
  - BRADYCARDIA [None]
  - CARDIAC PACEMAKER INSERTION [None]
